FAERS Safety Report 8830311 (Version 5)
Quarter: 2013Q4

REPORT INFORMATION
  Report Type: Spontaneous
  Country: US (occurrence: US)
  Receive Date: 20121009
  Receipt Date: 20131220
  Transmission Date: 20140711
  Serious: Yes (Other)
  Sender: FDA-Public Use
  Company Number: US-PFIZER INC-2012247625

PATIENT
  Sex: Male

DRUGS (1)
  1. LYRICA [Suspect]
     Dosage: UNK
     Dates: start: 20120801, end: 2012

REACTIONS (5)
  - Shock [Unknown]
  - Hypertension [Unknown]
  - Heart rate increased [Unknown]
  - Skin discolouration [Unknown]
  - Pain in extremity [Unknown]
